FAERS Safety Report 15549034 (Version 3)
Quarter: 2018Q4

REPORT INFORMATION
  Report Type: Spontaneous
  Country: BR (occurrence: BR)
  Receive Date: 20181025
  Receipt Date: 20181203
  Transmission Date: 20190205
  Serious: Yes (Hospitalization, Disabling, Other)
  Sender: FDA-Public Use
  Company Number: BR-BRISTOL-MYERS SQUIBB COMPANY-BMS-2018-092812

PATIENT
  Age: 56 Year
  Sex: Female

DRUGS (1)
  1. OPDIVO [Suspect]
     Active Substance: NIVOLUMAB
     Indication: LUNG NEOPLASM MALIGNANT
     Dosage: UNK UNK, Q2WK
     Route: 042
     Dates: start: 201705, end: 201807

REACTIONS (3)
  - Dermatitis [Unknown]
  - Adrenal insufficiency [Unknown]
  - Skin lesion [Unknown]

NARRATIVE: CASE EVENT DATE: 201712
